FAERS Safety Report 13746070 (Version 1)
Quarter: 2017Q3

REPORT INFORMATION
  Report Type: Spontaneous
  Country: FR (occurrence: FR)
  Receive Date: 20170712
  Receipt Date: 20170712
  Transmission Date: 20171127
  Serious: Yes (Other)
  Sender: FDA-Public Use
  Company Number: FR-BAYER-2017-131432

PATIENT
  Age: 32 Year
  Sex: Female

DRUGS (1)
  1. MIRENA [Suspect]
     Active Substance: LEVONORGESTREL
     Dosage: 20 MCG/24HR, CONT
     Route: 015
     Dates: start: 20130301, end: 20170501

REACTIONS (6)
  - Vulvovaginal dryness [Unknown]
  - Irritability [Unknown]
  - Weight increased [Unknown]
  - Breast pain [Unknown]
  - Depression [Unknown]
  - Breast cyst [Unknown]

NARRATIVE: CASE EVENT DATE: 20130701
